FAERS Safety Report 12642043 (Version 1)
Quarter: 2016Q3

REPORT INFORMATION
  Report Type: Spontaneous
  Country: RU (occurrence: RU)
  Receive Date: 20160810
  Receipt Date: 20160810
  Transmission Date: 20161109
  Serious: Yes (Other)
  Sender: FDA-Public Use
  Company Number: RU-CONCORDIA PHARMACEUTICALS INC.-CO-ZO-RU-2016-083

PATIENT
  Age: 15 Year
  Sex: Female
  Weight: 48 kg

DRUGS (3)
  1. ZONEGRAN [Suspect]
     Active Substance: ZONISAMIDE
     Indication: EPILEPSY
     Dosage: UNKNOWN (UP-TITRATION)
     Route: 048
     Dates: start: 201601, end: 201601
  2. ZONEGRAN [Suspect]
     Active Substance: ZONISAMIDE
     Dosage: 200 MG
     Route: 048
     Dates: start: 201602, end: 201604
  3. TRILEPTAL [Concomitant]
     Active Substance: OXCARBAZEPINE
     Dosage: 1200 MG
     Route: 048

REACTIONS (3)
  - Nausea [Recovering/Resolving]
  - Weight decreased [Recovering/Resolving]
  - Decreased appetite [Recovering/Resolving]

NARRATIVE: CASE EVENT DATE: 201604
